FAERS Safety Report 6009598-3 (Version None)
Quarter: 2008Q4

REPORT INFORMATION
  Report Type: 
  Country: None (occurrence: None)
  Receive Date: 20081216
  Receipt Date: 20081205
  Transmission Date: 20090506
  Serious: Yes (Hospitalization)
  Sender: FDA-Public Use
  Company Number: 236908J08USA

PATIENT
  Age: 34 Year
  Sex: Female

DRUGS (2)
  1. REBIF [Suspect]
     Indication: MULTIPLE SCLEROSIS
     Dosage: 44 MCG, 3 IN 1 WEEKS, SUBCUTANEOUS
     Route: 058
     Dates: start: 20080711
  2. ADVIL [Concomitant]

REACTIONS (13)
  - ABDOMINAL PAIN [None]
  - AMNESIA [None]
  - CONDITION AGGRAVATED [None]
  - CYST [None]
  - FALLOPIAN TUBE DISORDER [None]
  - FEELING ABNORMAL [None]
  - HYPOAESTHESIA FACIAL [None]
  - INJECTION SITE HAEMATOMA [None]
  - INJECTION SITE REACTION [None]
  - INJECTION SITE SWELLING [None]
  - MULTIPLE SCLEROSIS [None]
  - OPTIC NEURITIS [None]
  - VISUAL IMPAIRMENT [None]
